FAERS Safety Report 8546030-X (Version None)
Quarter: 2012Q3

REPORT INFORMATION
  Report Type: 
  Country: None (occurrence: None)
  Receive Date: 20120727
  Receipt Date: 20120716
  Transmission Date: 20120928
  Serious: Yes (Hospitalization, Disabling, Other)
  Sender: FDA-Public Use
  Company Number: US-009507513-1202USA03897

PATIENT

DRUGS (8)
  1. CALCIUM (UNSPECIFIED) [Concomitant]
     Dosage: 600 MG, BID
     Route: 048
     Dates: start: 19920101
  2. FOSAMAX [Suspect]
     Dosage: 40 MG, UNK
     Route: 048
     Dates: start: 20090917, end: 20120604
  3. FOSAMAX PLUS D [Suspect]
     Indication: OSTEOPOROSIS
     Dosage: 70MG/2800
     Route: 048
     Dates: start: 20061011, end: 20090807
  4. FOSAMAX [Suspect]
     Indication: OSTEOPOROSIS
     Dosage: 70 MG, QW
     Route: 048
     Dates: start: 20010813, end: 20060725
  5. CENTRUM (MINERALS (UNSPECIFIED) (+) VITAMINS (UNSPECIFIED)) [Concomitant]
     Dosage: UNK, QD
     Route: 048
     Dates: start: 19820101
  6. CYANOCOBALAMIN [Concomitant]
     Dates: start: 19920101
  7. FOSAMAX [Suspect]
     Dosage: 70 MG, UNK
     Route: 048
     Dates: start: 20100913, end: 20110901
  8. FOSAMAX [Suspect]
     Route: 048
     Dates: start: 20091023, end: 20100611

REACTIONS (22)
  - NASAL CONGESTION [None]
  - IRON DEFICIENCY ANAEMIA [None]
  - ELECTROCARDIOGRAM POOR R-WAVE PROGRESSION [None]
  - HAEMORRHAGIC ANAEMIA [None]
  - DEVICE FAILURE [None]
  - CONSTIPATION [None]
  - MYOCARDIAL ISCHAEMIA [None]
  - TRICUSPID VALVE INCOMPETENCE [None]
  - FRACTURE DELAYED UNION [None]
  - HYPERCHOLESTEROLAEMIA [None]
  - MITRAL VALVE INCOMPETENCE [None]
  - TOOTH DISORDER [None]
  - DRUG HYPERSENSITIVITY [None]
  - BACK PAIN [None]
  - LOW TURNOVER OSTEOPATHY [None]
  - ARTHRALGIA [None]
  - FEMUR FRACTURE [None]
  - FALL [None]
  - BLOOD GLUCOSE INCREASED [None]
  - POSTOPERATIVE FEVER [None]
  - PELVIC PAIN [None]
  - WRIST FRACTURE [None]
